FAERS Safety Report 4512385-6 (Version None)
Quarter: 2004Q4

REPORT INFORMATION
  Report Type: 
  Country: None (occurrence: None)
  Receive Date: 20041123
  Receipt Date: 20041110
  Transmission Date: 20050328
  Serious: No
  Sender: FDA-Public Use
  Company Number: 2004CG02264

PATIENT
  Age: 3 Year
  Sex: Male

DRUGS (2)
  1. PULMICORT [Suspect]
     Indication: ASTHMA
     Dosage: 100 UG BID IH
     Route: 055
     Dates: end: 20041107
  2. BRICANYL [Concomitant]

REACTIONS (3)
  - ASTHMA [None]
  - DEVICE FAILURE [None]
  - DRUG INEFFECTIVE [None]
